FAERS Safety Report 18939513 (Version 1)
Quarter: 2021Q1

REPORT INFORMATION
  Report Type: Spontaneous
  Country: US (occurrence: US)
  Receive Date: 20210225
  Receipt Date: 20210225
  Transmission Date: 20210420
  Serious: No
  Sender: FDA-Public Use
  Company Number: US-TAKEDA-2021TUS011529

PATIENT
  Sex: Female
  Weight: 109 kg

DRUGS (23)
  1. ASPIRIN [ACETYLSALICYLIC ACID] [Concomitant]
     Active Substance: ASPIRIN
  2. PANTOPRAZOLE [Concomitant]
     Active Substance: PANTOPRAZOLE
  3. ZANTAC [Concomitant]
     Active Substance: RANITIDINE HYDROCHLORIDE
  4. CELEBREX [Concomitant]
     Active Substance: CELECOXIB
  5. CENTRUM SILVER [Concomitant]
     Active Substance: MINERALS\VITAMINS
  6. ACETAMINOPHEN. [Concomitant]
     Active Substance: ACETAMINOPHEN
  7. NORMAL SALINE [Concomitant]
     Active Substance: SODIUM CHLORIDE
  8. EPINEPHRINE. [Concomitant]
     Active Substance: EPINEPHRINE
  9. XOPENEX [Concomitant]
     Active Substance: LEVALBUTEROL HYDROCHLORIDE
  10. DIPHENHYDRAMINE. [Concomitant]
     Active Substance: DIPHENHYDRAMINE
  11. SPIRONOLACTONE. [Concomitant]
     Active Substance: SPIRONOLACTONE
  12. HYQVIA [Suspect]
     Active Substance: HUMAN IMMUNOGLOBULIN G\HYALURONIDASE RECOMBINANT HUMAN
     Indication: IMMUNODEFICIENCY
     Dosage: 30 GRAM, Q6WEEKS
     Route: 058
     Dates: start: 20150825
  13. LMX4 [Concomitant]
     Active Substance: LIDOCAINE
  14. PROBIOTICS NOS [Concomitant]
     Active Substance: PROBIOTICS NOS
  15. PREMARIN [Concomitant]
     Active Substance: ESTROGENS, CONJUGATED
  16. VITAMIN D3 [Concomitant]
     Active Substance: CHOLECALCIFEROL
  17. NASACORT [Concomitant]
     Active Substance: TRIAMCINOLONE ACETONIDE
  18. ADVAIR HFA [Concomitant]
     Active Substance: FLUTICASONE PROPIONATE\SALMETEROL XINAFOATE
  19. METAMUCIL [Concomitant]
     Active Substance: PLANTAGO SEED
  20. SINGULAIR [Concomitant]
     Active Substance: MONTELUKAST SODIUM
  21. AZELASTINE. [Concomitant]
     Active Substance: AZELASTINE HYDROCHLORIDE
  22. LEVOXYL [Concomitant]
     Active Substance: LEVOTHYROXINE SODIUM
  23. FLOVENT [Concomitant]
     Active Substance: FLUTICASONE PROPIONATE

REACTIONS (3)
  - Rash [Unknown]
  - Rotator cuff syndrome [Unknown]
  - Pruritus [Unknown]
